FAERS Safety Report 23232677 (Version 1)
Quarter: 2023Q4

REPORT INFORMATION
  Report Type: Spontaneous
  Country: BR (occurrence: BR)
  Receive Date: 20231128
  Receipt Date: 20231128
  Transmission Date: 20240110
  Serious: Yes (Hospitalization)
  Sender: FDA-Public Use
  Company Number: BR-BoehringerIngelheim-2023-BI-274795

PATIENT
  Age: 70 Year
  Sex: Female
  Weight: 80 kg

DRUGS (1)
  1. CLONIDINE HYDROCHLORIDE [Suspect]
     Active Substance: CLONIDINE HYDROCHLORIDE
     Indication: Hypertension
     Dosage: 2 DF 1/1 DAY(S) (2 TABLETS A DAY, TO BLOOD PRESSURE ?HIGH FOR MORE THAN 10 YEARS [...])
     Route: 048

REACTIONS (2)
  - Rebound effect [Unknown]
  - Product availability issue [Not Recovered/Not Resolved]
